FAERS Safety Report 25397208 (Version 1)
Quarter: 2025Q2

REPORT INFORMATION
  Report Type: Spontaneous
  Country: US (occurrence: US)
  Receive Date: 20250604
  Receipt Date: 20250604
  Transmission Date: 20250717
  Serious: No
  Sender: SPRINGWORKS THERAPEUTIC
  Company Number: US-SPRINGWORKS THERAPEUTICS-SW-002674

PATIENT
  Age: 18 Year
  Sex: Female

DRUGS (2)
  1. GOMEKLI [Suspect]
     Active Substance: MIRDAMETINIB
     Indication: Neurofibromatosis
  2. GOMEKLI [Suspect]
     Active Substance: MIRDAMETINIB
     Indication: Neurofibroma

REACTIONS (1)
  - Pain [Unknown]
